FAERS Safety Report 4452794-7 (Version None)
Quarter: 2004Q3

REPORT INFORMATION
  Report Type: 
  Country: None (occurrence: None)
  Receive Date: 20040916
  Receipt Date: 20040914
  Transmission Date: 20050211
  Serious: Yes (Life-Threatening, Hospitalization, Other)
  Sender: FDA-Public Use
  Company Number: THQ2004A00827

PATIENT
  Age: 68 Year
  Sex: Male

DRUGS (11)
  1. LANSOPRAZOLE [Suspect]
     Indication: PEPTIC ULCER
     Dosage: 15 MG (15 MG, OM) PER ORAL
     Route: 048
     Dates: start: 20040719, end: 20040812
  2. GAVISCON [Concomitant]
  3. SENNA (SENNA) [Concomitant]
  4. MAGNESIUM HYDROXIDE MAGNESIUM HYDROXIDE) [Concomitant]
  5. GLICLAZIDE (GLICLAZIDE) [Concomitant]
  6. THIAMINE (THIAMINE) [Concomitant]
  7. AMLODIPINE [Concomitant]
  8. ASPIRIN [Concomitant]
  9. DOXAZOSIN (DOXAZOSIN) [Concomitant]
  10. RAMIPRIL [Concomitant]
  11. ACETAMINOPHEN [Concomitant]

REACTIONS (1)
  - RENAL IMPAIRMENT [None]
